FAERS Safety Report 5922653-9 (Version None)
Quarter: 2008Q3

REPORT INFORMATION
  Report Type: 
  Country: None (occurrence: None)
  Receive Date: 20080909
  Receipt Date: 20071211
  Transmission Date: 20090109
  Serious: Yes (Death)
  Sender: FDA-Public Use
  Company Number: 163-20785-06120988 (1)

PATIENT
  Age: 64 Year
  Sex: Male

DRUGS (5)
  1. THALOMID [Suspect]
     Indication: MULTIPLE MYELOMA
     Dosage: 200 MG, 2 IN 1 D, ORAL : 100 MG, QHS, ORAL
     Route: 048
     Dates: start: 20031201, end: 20041001
  2. THALOMID [Suspect]
     Indication: MULTIPLE MYELOMA
     Dosage: 200 MG, 2 IN 1 D, ORAL : 100 MG, QHS, ORAL
     Route: 048
     Dates: start: 20060601
  3. COUMADIN [Concomitant]
  4. MS CONTIN [Concomitant]
  5. AREDIA [Concomitant]

REACTIONS (1)
  - DISEASE PROGRESSION [None]
